FAERS Safety Report 6088473-2 (Version None)
Quarter: 2009Q1

REPORT INFORMATION
  Report Type: 
  Country: None (occurrence: None)
  Receive Date: 20090224
  Receipt Date: 20090218
  Transmission Date: 20090719
  Serious: Yes (Death, Other)
  Sender: FDA-Public Use
  Company Number: US-CELGENEUS-163-20785-09021051

PATIENT
  Sex: Male

DRUGS (1)
  1. THALOMID [Suspect]
     Route: 048
     Dates: start: 20090122

REACTIONS (4)
  - DEATH [None]
  - FEELING HOT [None]
  - MUSCULOSKELETAL DISORDER [None]
  - PERIPHERAL COLDNESS [None]
